FAERS Safety Report 4807718-7 (Version None)
Quarter: 2005Q4

REPORT INFORMATION
  Report Type: 
  Country: None (occurrence: None)
  Receive Date: 20051019
  Receipt Date: 20051007
  Transmission Date: 20060501
  Serious: Yes (Hospitalization, Other)
  Sender: FDA-Public Use
  Company Number: 2005JP001905

PATIENT
  Age: 2 Year
  Sex: Male

DRUGS (3)
  1. PROGRAF [Suspect]
     Indication: BONE MARROW TRANSPLANT
  2. METHOTREXATE [Concomitant]
  3. PREDNISONE [Concomitant]

REACTIONS (4)
  - BONE MARROW TRANSPLANT REJECTION [None]
  - MONARTHRITIS [None]
  - OSTEOMYELITIS [None]
  - RENAL ABSCESS [None]
